FAERS Safety Report 9515825 (Version 1)
Quarter: 2013Q1

REPORT INFORMATION
  Report Type: Spontaneous
  Country: US (occurrence: None)
  Receive Date: 20130305
  Receipt Date: 20130305
  Transmission Date: 20140127
  Serious: Yes (Other)
  Sender: FDA-Public Use
  Company Number: 163-21880-12012149

PATIENT
  Age: 68 Year
  Sex: Male

DRUGS (18)
  1. REVLIMID [Suspect]
     Indication: AMYLOIDOSIS
     Dosage: 10 MG, 2 IN 1 D, PO
     Route: 048
     Dates: start: 201111
  2. OXYGEN (OXYGEN) (UNKNOWN) [Concomitant]
  3. ASPIRIN (ACETYLSALICYLIC ACID) (UNKNOWN) (ACETYLSALICYLIC ACID) [Concomitant]
  4. BENEFIBER (FIBRE, DIETARY) (UNKNOWN) [Concomitant]
  5. CARVEDILOL (CARVEDILOL) [Concomitant]
  6. DEXAMETHASONE (DEXAMETHASONE) (UNKNOWN) [Concomitant]
  7. EPOGEN (EPOETIN ALFA) (UNKNOWN) [Concomitant]
  8. HEPARIN (HEPARIN) (UNKNOWN) [Concomitant]
  9. LAXATIVE (SENNOSIDE A+B) (UNKNOWN) (SENNOSIDE A+B) [Concomitant]
  10. LEVOTHYROXIN (LEVOTHYROXINE SODIUM) (UNKNOWN) [Concomitant]
  11. LORAZEPAM (LORAZEPAM) (UNKNOWN) [Concomitant]
  12. MULTIVITAMIN (MULTIVITAMINS) (UNKNOWN) [Concomitant]
  13. NIFEDIPINE (NIFEDIPINE) (UNKNOWN) [Concomitant]
  14. OMEPRAZOLE (OMERPRAZOLE) (UNKNOWN) [Concomitant]
  15. ONDANSETRON (ONDANSETRON) (UNKNOWN) [Concomitant]
  16. OXYCODONE (OXYCODONE) (UNKNOWN) (OXYCODONE) [Concomitant]
  17. RENVELA (SEVELAMER CARBONATE) (UNKNOWN) [Concomitant]
  18. STOOL SOFTENER (DOCUSATE SODIUM) (UNKNOWN) [Concomitant]

REACTIONS (6)
  - Platelet count decreased [None]
  - Red blood cell count decreased [None]
  - Asthenia [None]
  - Fatigue [None]
  - Haemoglobin decreased [None]
  - Full blood count decreased [None]
